FAERS Safety Report 10553782 (Version 1)
Quarter: 2014Q4

REPORT INFORMATION
  Report Type: Spontaneous
  Country: US (occurrence: None)
  Receive Date: 20141029
  Receipt Date: 20141029
  Transmission Date: 20150529
  Serious: No
  Sender: FDA-Public Use
  Company Number: None

PATIENT
  Age: 15 Year
  Sex: Male

DRUGS (2)
  1. ENBREL [Suspect]
     Active Substance: ETANERCEPT
     Indication: RHEUMATOID ARTHRITIS
     Dosage: 50MG, WEEKLY, SUBCUTANEOUSLY
     Route: 058
     Dates: start: 20140620
  2. ENBREL [Suspect]
     Active Substance: ETANERCEPT
     Indication: POLYARTHRITIS
     Dosage: 50MG, WEEKLY, SUBCUTANEOUSLY
     Route: 058
     Dates: start: 20140620

REACTIONS (6)
  - Vision blurred [None]
  - Dyspnoea exertional [None]
  - Hyperhidrosis [None]
  - Hypertension [None]
  - Chest pain [None]
  - Headache [None]

NARRATIVE: CASE EVENT DATE: 20141027
